FAERS Safety Report 11872384 (Version 1)
Quarter: 2015Q4

REPORT INFORMATION
  Report Type: Spontaneous
  Country: US (occurrence: None)
  Receive Date: 20151224
  Receipt Date: 20151224
  Transmission Date: 20160305
  Serious: No
  Sender: FDA-Public Use
  Company Number: None

PATIENT
  Age: 63 Year
  Sex: Male
  Weight: 124.74 kg

DRUGS (25)
  1. GABAPENTIN 300MG 3 PILLS IN MORNING 3 PILLS AT NIGHT [Suspect]
     Active Substance: GABAPENTIN
     Indication: NEUROPATHY PERIPHERAL
     Dosage: 6 PILLS 300 MG ./ 3 PILLS 2 TIME A DAY
     Route: 048
     Dates: start: 20150801, end: 20151120
  2. KLOR-CON [Concomitant]
     Active Substance: POTASSIUM CHLORIDE
  3. NYSTATIN. [Concomitant]
     Active Substance: NYSTATIN
  4. ASPIRIN. [Concomitant]
     Active Substance: ASPIRIN
  5. MAGNESIUM [Concomitant]
     Active Substance: MAGNESIUM
  6. TYLENOL WITH CODEINE #3 (ACETAMINOPHEN-CODEINE) [Concomitant]
  7. LORATADINE. [Concomitant]
     Active Substance: LORATADINE
  8. LYRICA [Concomitant]
     Active Substance: PREGABALIN
  9. ATENOLOL. [Concomitant]
     Active Substance: ATENOLOL
  10. MELATONIN [Concomitant]
     Active Substance: MELATONIN
  11. PRILOSEC (OMEPRAZOLE) [Concomitant]
     Active Substance: OMEPRAZOLE MAGNESIUM
  12. ZOCOR [Concomitant]
     Active Substance: SIMVASTATIN
  13. CLONIDINE HCI [Concomitant]
  14. GLIMEPIRIDE. [Concomitant]
     Active Substance: GLIMEPIRIDE
  15. TRIAMTERENE-HCTZ [Concomitant]
     Active Substance: HYDROCHLOROTHIAZIDE\TRIAMTERENE
  16. DITROPAN XL [Concomitant]
     Active Substance: OXYBUTYNIN CHLORIDE
  17. MAGIC MOUTHWASH [Concomitant]
     Active Substance: DIPHENHYDRAMINE HYDROCHLORIDE\LIDOCAINE HYDROCHLORIDE\NYSTATIN
  18. LIDOCAINE. [Concomitant]
     Active Substance: LIDOCAINE
  19. BENADRYL [Concomitant]
     Active Substance: DIPHENHYDRAMINE HYDROCHLORIDE
  20. CLINDAMYCIN PHOSPHATE 1% EXTERNAL LOTION [Concomitant]
  21. LISINOPRIL. [Concomitant]
     Active Substance: LISINOPRIL
  22. MULTIVITAL PLATINUM [Concomitant]
  23. PRESERVISION AREDS [Concomitant]
     Active Substance: MINERALS\VITAMINS
  24. SYNTHROID [Concomitant]
     Active Substance: LEVOTHYROXINE SODIUM
  25. VITAMIN B12 [Concomitant]
     Active Substance: CYANOCOBALAMIN

REACTIONS (5)
  - Nasal pruritus [None]
  - Fatigue [None]
  - Somnolence [None]
  - Dry mouth [None]
  - Hypersomnia [None]

NARRATIVE: CASE EVENT DATE: 20150801
